FAERS Safety Report 4541819-6 (Version None)
Quarter: 2004Q4

REPORT INFORMATION
  Report Type: 
  Country: None (occurrence: None)
  Receive Date: 20041227
  Receipt Date: 20041210
  Transmission Date: 20050328
  Serious: Yes (Death)
  Sender: FDA-Public Use
  Company Number: 211055

PATIENT
  Age: 68 Year
  Sex: Male
  Weight: 84 kg

DRUGS (19)
  1. MABTHERA           (RITUXIMAB) [Suspect]
     Indication: NON-HODGKIN'S LYMPHOMA
     Dosage: 750 MG, INTRAVENOUS
     Route: 042
     Dates: start: 20031016, end: 20040218
  2. ONDANSETRON HYDROCHLORIDE [Suspect]
     Dates: start: 20031016, end: 20040216
  3. ADRIBLASTINE           (DOXORUBICIN, DOXORUBICIN HYDROCHLORIDE) [Suspect]
     Indication: NON-HODGKIN'S LYMPHOMA
     Dosage: 100 MG
     Dates: start: 20031016, end: 20031127
  4. CYTARABINE [Suspect]
     Indication: NON-HODGKIN'S LYMPHOMA
     Dosage: 4000 MG
     Dates: start: 20031222, end: 20040218
  5. ONCOVIN [Suspect]
     Indication: NON-HODGKIN'S LYMPHOMA
     Dates: start: 20031016, end: 20031127
  6. CISPLATIN [Suspect]
     Indication: NON-HODGKIN'S LYMPHOMA
     Dosage: 200 MG
     Dates: start: 20031222, end: 20040218
  7. CYCLOPHOSPHAMIDE [Suspect]
     Indication: NON-HODGKIN'S LYMPHOMA
     Dosage: 60 MG
     Dates: start: 20031016, end: 20031127
  8. DEXAMETHASONE [Concomitant]
  9. SOLU-MEDROL [Concomitant]
  10. PREDNISONE TAB [Concomitant]
  11. NEULASTA [Concomitant]
  12. FASTURTEC           (RASBURICASE) [Concomitant]
  13. ACETAMINOPHEN [Concomitant]
  14. POLARAMINE [Concomitant]
  15. CELECTOL               (CELIPROLOL HYDROCHLORIDE) [Concomitant]
  16. RAMIPRIL [Concomitant]
  17. PERMIXON           (SAW PALMETTO) [Concomitant]
  18. DYSALFA            (TERAZSIN HYDROCHLORIDE) [Concomitant]
  19. ASPEGIC 325 [Concomitant]

REACTIONS (1)
  - PULMONARY FIBROSIS [None]
